FAERS Safety Report 8116077-6 (Version None)
Quarter: 2012Q1

REPORT INFORMATION
  Report Type: 
  Country: None (occurrence: None)
  Receive Date: 20120206
  Receipt Date: 20120201
  Transmission Date: 20120608
  Serious: Yes (Other)
  Sender: FDA-Public Use
  Company Number: BR-PFIZER INC-2012028621

PATIENT
  Age: 48 Year
  Sex: Female

DRUGS (1)
  1. LYRICA [Suspect]
     Indication: BONE PAIN
     Dosage: 75 MG, 2X/DAY (1  CAPSULE, 2X/DAY)
     Route: 048

REACTIONS (4)
  - SPINAL CORD COMPRESSION [None]
  - HEADACHE [None]
  - LOCALISED OEDEMA [None]
  - GAIT DISTURBANCE [None]
